FAERS Safety Report 7247908-X (Version None)
Quarter: 2011Q1

REPORT INFORMATION
  Report Type: 
  Country: None (occurrence: None)
  Receive Date: 20110127
  Receipt Date: 20110124
  Transmission Date: 20110831
  Serious: No
  Sender: FDA-Public Use
  Company Number: US-PFIZER INC-2011016631

PATIENT
  Sex: Female
  Weight: 90.703 kg

DRUGS (3)
  1. PREPARATION H HEMORRHOIDAL SUPPOSITORIES [Suspect]
     Indication: CONSTIPATION
     Dosage: UNK
     Dates: start: 20110101, end: 20110101
  2. NORVASC [Concomitant]
     Indication: HYPERTENSION
     Dosage: 5 MG, 1X/DAY
     Route: 048
  3. HYDROCORTISONE [Suspect]
     Indication: CONSTIPATION
     Dosage: UNK

REACTIONS (1)
  - ANAL PRURITUS [None]
